FAERS Safety Report 24151956 (Version 2)
Quarter: 2024Q4

REPORT INFORMATION
  Report Type: Spontaneous
  Country: US (occurrence: US)
  Receive Date: 20240730
  Receipt Date: 20241015
  Transmission Date: 20250114
  Serious: No
  Sender: ALEXION PHARMACEUTICALS
  Company Number: US-AstraZeneca-CH-00673147A

PATIENT
  Age: 49 Year
  Weight: 82.9 kg

DRUGS (8)
  1. ULTOMIRIS [Suspect]
     Active Substance: RAVULIZUMAB-CWVZ
     Dosage: UNK
     Route: 065
  2. ULTOMIRIS [Suspect]
     Active Substance: RAVULIZUMAB-CWVZ
     Dosage: UNK
  3. ULTOMIRIS [Suspect]
     Active Substance: RAVULIZUMAB-CWVZ
     Dosage: UNK
     Route: 065
  4. ULTOMIRIS [Suspect]
     Active Substance: RAVULIZUMAB-CWVZ
     Dosage: UNK
  5. VOYDEYA [Suspect]
     Active Substance: DANICOPAN
     Indication: Paroxysmal nocturnal haemoglobinuria
     Dosage: 150 MILLIGRAM, TID
  6. VOYDEYA [Suspect]
     Active Substance: DANICOPAN
     Dosage: 150 MILLIGRAM, TID
  7. VOYDEYA [Suspect]
     Active Substance: DANICOPAN
     Dosage: 150 MILLIGRAM, TID
  8. VOYDEYA [Suspect]
     Active Substance: DANICOPAN
     Dosage: 150 MILLIGRAM, TID

REACTIONS (1)
  - Somnolence [Recovered/Resolved]
